FAERS Safety Report 6781280-4 (Version None)
Quarter: 2010Q2

REPORT INFORMATION
  Report Type: 
  Country: None (occurrence: None)
  Receive Date: 20100621
  Receipt Date: 20100609
  Transmission Date: 20101027
  Serious: Yes (Other)
  Sender: FDA-Public Use
  Company Number: PHHY2010GB10306

PATIENT
  Age: 87 Year
  Sex: Female

DRUGS (6)
  1. RIVASTIGMINE [Suspect]
     Dosage: 4.6 MG
     Route: 062
     Dates: start: 20090902, end: 20100101
  2. RIVASTIGMINE [Suspect]
     Dosage: 4.6 MG
     Route: 062
     Dates: start: 20100101, end: 20100206
  3. ADCAL [Concomitant]
     Route: 048
  4. INHALATION THERAPY [Concomitant]
  5. RANITIDINE [Concomitant]
     Route: 048
  6. LEVOTHYROXINE SODIUM [Concomitant]
     Route: 065

REACTIONS (4)
  - CELLULITIS [None]
  - CONFUSIONAL STATE [None]
  - DEMENTIA [None]
  - RASH [None]
